FAERS Safety Report 24323247 (Version 1)
Quarter: 2024Q3

REPORT INFORMATION
  Report Type: Spontaneous
  Country: CA (occurrence: CA)
  Receive Date: 20240916
  Receipt Date: 20240916
  Transmission Date: 20241016
  Serious: Yes (Other)
  Sender: NOVARTIS
  Company Number: CA-002147023-NVSC2024CA183268

PATIENT
  Age: 39 Year
  Sex: Female

DRUGS (1)
  1. KESIMPTA [Suspect]
     Active Substance: OFATUMUMAB
     Indication: Multiple sclerosis
     Dosage: 20 MG, QMO (1 EVERY 1 MONTHS) (DOSAGE FORM: SOLUTION SUBCUTANEOUS)
     Route: 058

REACTIONS (4)
  - Oral bacterial infection [Not Recovered/Not Resolved]
  - Oral fungal infection [Not Recovered/Not Resolved]
  - Oral infection [Not Recovered/Not Resolved]
  - Intentional dose omission [Not Recovered/Not Resolved]
